FAERS Safety Report 4529404-3 (Version None)
Quarter: 2004Q4

REPORT INFORMATION
  Report Type: 
  Country: None (occurrence: None)
  Receive Date: 20041216
  Receipt Date: 20041209
  Transmission Date: 20050328
  Serious: Yes (Other)
  Sender: FDA-Public Use
  Company Number: 2004AP000911

PATIENT
  Sex: Female
  Weight: 3 kg

DRUGS (7)
  1. RANITIDINE HCL [Suspect]
     Dates: start: 20030627
  2. AMOXICILLIN [Suspect]
     Dates: start: 20030811, end: 20030818
  3. PERMETHRIN [Suspect]
     Dates: start: 20030916
  4. IRON [Suspect]
     Dates: start: 20030924, end: 20031201
  5. INFLUENZA VACCIN [Suspect]
     Dates: start: 20031016
  6. ALBUTEROL [Suspect]
  7. BELCOMETASONE DIPROPIONATE [Suspect]

REACTIONS (2)
  - DRUG EXPOSURE DURING PREGNANCY [None]
  - TALIPES [None]
